FAERS Safety Report 21995443 (Version 1)
Quarter: 2023Q1

REPORT INFORMATION
  Report Type: Spontaneous
  Country: US (occurrence: US)
  Receive Date: 20230215
  Receipt Date: 20230215
  Transmission Date: 20230418
  Serious: No
  Sender: FDA-Public Use
  Company Number: US-SA-SAC20230213000128

PATIENT
  Sex: Female

DRUGS (1)
  1. DUPIXENT [Suspect]
     Active Substance: DUPILUMAB
     Indication: Asthma
     Dosage: 300 MG, QOW
     Route: 058
     Dates: start: 20220524

REACTIONS (6)
  - Impaired quality of life [Unknown]
  - Infection [Unknown]
  - Myalgia [Unknown]
  - Arthralgia [Unknown]
  - Asthma [Unknown]
  - Product dose omission in error [Unknown]
